FAERS Safety Report 10570366 (Version 1)
Quarter: 2014Q4

REPORT INFORMATION
  Report Type: Spontaneous
  Country: US (occurrence: US)
  Receive Date: 20141107
  Receipt Date: 20141107
  Transmission Date: 20150529
  Serious: No
  Sender: FDA-Public Use
  Company Number: US-TEVA-520380USA

PATIENT
  Age: 35 Year
  Sex: Female
  Weight: 68.55 kg

DRUGS (1)
  1. PARAGARD T380A [Suspect]
     Active Substance: COPPER
     Indication: CONTRACEPTION
     Route: 015

REACTIONS (5)
  - Vaginal haemorrhage [Recovered/Resolved]
  - Feeling hot [Recovered/Resolved]
  - Embedded device [Recovered/Resolved]
  - Discomfort [Recovered/Resolved]
  - Adverse event [Unknown]

NARRATIVE: CASE EVENT DATE: 20141024
